FAERS Safety Report 8583876-6 (Version None)
Quarter: 2012Q3

REPORT INFORMATION
  Report Type: 
  Country: None (occurrence: None)
  Receive Date: 20120810
  Receipt Date: 20120731
  Transmission Date: 20120928
  Serious: Yes (Hospitalization, Disabling, Other)
  Sender: FDA-Public Use
  Company Number: US-009507513-1112USA00612

PATIENT

DRUGS (8)
  1. FOSAMAX [Suspect]
     Indication: OSTEOPOROSIS
     Dosage: 10 MG, QW
     Route: 048
     Dates: start: 19981201, end: 20030401
  2. FOSAMAX [Suspect]
     Dosage: 70 MG, QW
     Route: 048
     Dates: start: 20030520, end: 20051101
  3. PERCOCET [Concomitant]
     Indication: BACK PAIN
     Dosage: 5 MG, TID
  4. FOSAMAX [Suspect]
     Dosage: 10 MG, QD
     Route: 048
     Dates: start: 20051206, end: 20090915
  5. FOSAMAX [Suspect]
     Dosage: 10 MG, QW
     Route: 048
     Dates: start: 20051201, end: 20051201
  6. MIACALCIN [Concomitant]
     Indication: OSTEOPOROSIS
  7. FOSAMAX [Suspect]
     Indication: OSTEOPENIA
     Dosage: 10 MG, QD
     Route: 048
     Dates: start: 19981203
  8. FOSAMAX [Suspect]
     Dosage: 10 MG, QD
     Route: 048
     Dates: start: 20000411, end: 20030422

REACTIONS (26)
  - CELLULITIS [None]
  - SPINAL FRACTURE [None]
  - HAND FRACTURE [None]
  - FOOT FRACTURE [None]
  - OSTEOPOROSIS [None]
  - STAPHYLOCOCCAL OSTEOMYELITIS [None]
  - RIB FRACTURE [None]
  - INFUSION SITE ERYTHEMA [None]
  - KYPHOSIS [None]
  - HAEMANGIOMA [None]
  - WRIST FRACTURE [None]
  - LUMBAR SPINAL STENOSIS [None]
  - FRACTURE NONUNION [None]
  - LOW TURNOVER OSTEOPATHY [None]
  - FEMUR FRACTURE [None]
  - SPINAL CORD COMPRESSION [None]
  - ANKLE FRACTURE [None]
  - GASTROOESOPHAGEAL REFLUX DISEASE [None]
  - TOOTH DISORDER [None]
  - TYPE 2 DIABETES MELLITUS [None]
  - INFUSION SITE DISCOMFORT [None]
  - HYPOREFLEXIA [None]
  - OSTEOMYELITIS [None]
  - SPINAL COMPRESSION FRACTURE [None]
  - NEPHROLITHIASIS [None]
  - LIMB INJURY [None]
